FAERS Safety Report 6542880-X (Version None)
Quarter: 2010Q1

REPORT INFORMATION
  Report Type: 
  Country: None (occurrence: None)
  Receive Date: 20100120
  Receipt Date: 20100111
  Transmission Date: 20100710
  Serious: Yes (Hospitalization)
  Sender: FDA-Public Use
  Company Number: US-BIOGENIDEC-2010BI000948

PATIENT
  Age: 31 Year
  Sex: Female
  Weight: 90 kg

DRUGS (3)
  1. AVONEX [Suspect]
     Indication: MULTIPLE SCLEROSIS
     Route: 030
     Dates: start: 20020101, end: 20030101
  2. AVONEX [Suspect]
     Route: 030
     Dates: start: 20030101, end: 20071101
  3. AVONEX [Suspect]
     Route: 030
     Dates: start: 20090101, end: 20090101

REACTIONS (1)
  - GASTRIC BYPASS [None]
